FAERS Safety Report 14662491 (Version 1)
Quarter: 2018Q1

REPORT INFORMATION
  Report Type: Spontaneous
  Country: MX (occurrence: MX)
  Receive Date: 20180321
  Receipt Date: 20180321
  Transmission Date: 20180509
  Serious: Yes (Other)
  Sender: FDA-Public Use
  Company Number: MX-009507513-1803MEX007746

PATIENT
  Sex: Female

DRUGS (2)
  1. MIFEPRISTONE [Suspect]
     Active Substance: MIFEPRISTONE
     Indication: ABORTION INDUCED
     Dosage: UNK
     Dates: start: 2017
  2. IMPLANON [Suspect]
     Active Substance: ETONOGESTREL
     Dosage: SUBDERMAL IMPLANT
     Route: 059
     Dates: start: 2017, end: 201803

REACTIONS (3)
  - Back pain [Unknown]
  - Abortion induced incomplete [Unknown]
  - Maternal exposure during pregnancy [Recovered/Resolved]

NARRATIVE: CASE EVENT DATE: 2017
